FAERS Safety Report 17967203 (Version 1)
Quarter: 2020Q2

REPORT INFORMATION
  Report Type: Spontaneous
  Country: US (occurrence: US)
  Receive Date: 20200630
  Receipt Date: 20200630
  Transmission Date: 20200714
  Serious: Yes (Other)
  Sender: FDA-Public Use
  Company Number: None

PATIENT
  Age: 75 Year
  Sex: Female
  Weight: 93.7 kg

DRUGS (16)
  1. REMDESIVIR. [Suspect]
     Active Substance: REMDESIVIR
     Indication: COVID-19 PNEUMONIA
     Route: 042
     Dates: start: 20200618, end: 20200625
  2. GABAPENTIN 600 MG PO QHS [Concomitant]
     Dates: start: 20200618
  3. FUROSEMIDE 20 MG IV BID [Concomitant]
     Dates: start: 20200623, end: 20200623
  4. CHOLCECALCIFEROL 4,000 IU PO DAILY [Concomitant]
     Dates: start: 20200618, end: 20200626
  5. FERROUS SULFATE 325 MG PO DAILY [Concomitant]
     Dates: start: 20200618
  6. LISINOPRIL 20 MG PO DAILY [Concomitant]
     Dates: start: 20200618, end: 20200623
  7. ASCORBIC ACID 500 MG PO FOUR TIMES DAILY [Concomitant]
     Dates: start: 20200618
  8. LEVOTHYROXINE 75 MCG PO DAILY [Concomitant]
     Dates: start: 20200618
  9. HYDROCHLOROTHIAZIDE 12.5 MG PO DAILY [Concomitant]
     Dates: start: 20200618, end: 20200624
  10. METHYLPREDNISOLONE 20 MG IV Q6H [Concomitant]
     Dates: start: 20200618, end: 20200627
  11. PANTOPRAZOLE 40 MG PO DAILY [Concomitant]
     Dates: start: 20200622
  12. RAMELTEON 8 MG PO QHS [Concomitant]
     Dates: start: 20200618, end: 20200629
  13. OMETA-3 FATTY ACIDS 1 GRAM PO DAILY [Concomitant]
     Dates: start: 20200618
  14. DIGOXIN 0.25 MG IV Q8H X3 DOSES [Concomitant]
     Dates: start: 20200624, end: 20200624
  15. ENOXAPARIN 40 MG SQ Q12H [Concomitant]
     Dates: start: 20200617
  16. MULTIVITAMIN 1 TAB PO DAILY [Concomitant]
     Dates: start: 20200618

REACTIONS (4)
  - Pulmonary hypertension [None]
  - Acute kidney injury [None]
  - Therapy cessation [None]
  - Right ventricular enlargement [None]

NARRATIVE: CASE EVENT DATE: 20200625
